FAERS Safety Report 5018056-4 (Version None)
Quarter: 2006Q2

REPORT INFORMATION
  Report Type: 
  Country: None (occurrence: None)
  Receive Date: 20060530
  Receipt Date: 20050113
  Transmission Date: 20061013
  Serious: Yes (Hospitalization)
  Sender: FDA-Public Use
  Company Number: 2005013873

PATIENT
  Age: 53 Year
  Sex: Female
  Weight: 80 kg

DRUGS (11)
  1. LYRICA [Suspect]
     Indication: NEURALGIA
     Dosage: 300 MG (150 MG, 2 IN 1 D), ORAL
     Route: 048
     Dates: start: 20041018
  2. GABAPENTIN [Concomitant]
  3. DANTROLENE SODIUM [Concomitant]
  4. LEVOTHYROXINE SODIUM [Concomitant]
  5. CELECOXIB [Concomitant]
  6. DOXEPIN HYDROCHLORIDE [Concomitant]
  7. RAMIPRIL [Concomitant]
  8. ATENOLOL [Concomitant]
  9. PAROXETINE HYDROCHLORIDE [Concomitant]
  10. FUROSEMIDE [Concomitant]
  11. BACLOFEN [Concomitant]

REACTIONS (4)
  - FEELING HOT [None]
  - FLUSHING [None]
  - HYPERTENSIVE CRISIS [None]
  - SOMNOLENCE [None]
